FAERS Safety Report 4596952-X (Version None)
Quarter: 2005Q1

REPORT INFORMATION
  Report Type: 
  Country: None (occurrence: None)
  Receive Date: 20050228
  Receipt Date: 20050107
  Transmission Date: 20050727
  Serious: Yes (Other)
  Sender: FDA-Public Use
  Company Number: 2004099155

PATIENT
  Sex: Female

DRUGS (4)
  1. BEXTRA [Suspect]
     Indication: BURSITIS
     Dosage: 20 MG (20 MG, 1 IN 1 D)
     Dates: start: 20020101
  2. BEXTRA [Suspect]
     Indication: OSTEOARTHRITIS
     Dosage: 20 MG (20 MG, 1 IN 1 D)
     Dates: start: 20020101
  3. BEXTRA [Suspect]
     Indication: POST PROCEDURAL PAIN
     Dosage: 20 MG (20 MG, 1 IN 1 D)
     Dates: start: 20020101
  4. DILTIAZEM HYDROCHLORIDE [Concomitant]

REACTIONS (7)
  - ARTHRALGIA [None]
  - DRUG EFFECT DECREASED [None]
  - FALL [None]
  - JOINT SPRAIN [None]
  - MENISCUS LESION [None]
  - PAIN IN EXTREMITY [None]
  - TENDON INJURY [None]
